FAERS Safety Report 10210906 (Version 1)
Quarter: 2014Q2

REPORT INFORMATION
  Report Type: Spontaneous
  Country: US (occurrence: US)
  Receive Date: 20140602
  Receipt Date: 20140602
  Transmission Date: 20141212
  Serious: Yes (Other)
  Sender: FDA-Public Use
  Company Number: US-PFIZER INC-2014150501

PATIENT
  Age: 46 Year
  Sex: Female
  Weight: 56.24 kg

DRUGS (2)
  1. RELPAX [Suspect]
     Indication: MIGRAINE
     Dosage: 40 MG, 2X/WEEK
     Dates: start: 2005
  2. RANITIDINE [Concomitant]
     Indication: GASTRIC DISORDER
     Dosage: 150 MG, 2X/DAY
     Route: 048

REACTIONS (1)
  - Brain neoplasm malignant [Unknown]
